FAERS Safety Report 25323324 (Version 3)
Quarter: 2025Q3

REPORT INFORMATION
  Report Type: Report from Study
  Country: TW (occurrence: TW)
  Receive Date: 20250516
  Receipt Date: 20250709
  Transmission Date: 20251020
  Serious: Yes (Other)
  Sender: ABBVIE
  Company Number: TW-ABBVIE-6280262

PATIENT
  Age: 63 Year
  Sex: Female

DRUGS (1)
  1. RINVOQ [Suspect]
     Active Substance: UPADACITINIB
     Indication: Psoriatic arthropathy
     Route: 048
     Dates: start: 20240412, end: 20250505

REACTIONS (1)
  - Lung carcinoma cell type unspecified stage III [Recovering/Resolving]

NARRATIVE: CASE EVENT DATE: 20250502
